FAERS Safety Report 18312566 (Version 16)
Quarter: 2022Q1

REPORT INFORMATION
  Report Type: Report from Study
  Country: JP (occurrence: JP)
  Receive Date: 20200925
  Receipt Date: 20220304
  Transmission Date: 20220423
  Serious: Yes (Other)
  Sender: FDA-Public Use
  Company Number: NVSJ2020JP006210

PATIENT
  Age: 23 Month
  Sex: Male
  Weight: 7.3 kg

DRUGS (10)
  1. ZOLGENSMA [Suspect]
     Active Substance: ONASEMNOGENE ABEPARVOVEC-XIOI
     Indication: Spinal muscular atrophy
     Dosage: 55 ML, 1.1 X E14VG/KG, ONCE/SINGLE
     Route: 042
     Dates: start: 20200624, end: 20200624
  2. PREDNISOLONE [Concomitant]
     Active Substance: PREDNISOLONE
     Indication: Product used for unknown indication
     Dosage: 1 MG/KG, QD
     Route: 065
     Dates: start: 20200623, end: 20200804
  3. PREDNISOLONE [Concomitant]
     Active Substance: PREDNISOLONE
     Dosage: 0.5 MG/KG, QD
     Route: 065
     Dates: start: 20200805, end: 20200826
  4. PREDNISOLONE [Concomitant]
     Active Substance: PREDNISOLONE
     Dosage: 0.25 MG/KG, QD
     Route: 065
     Dates: start: 20200827, end: 20200916
  5. FAMOTIDINE [Concomitant]
     Active Substance: FAMOTIDINE
     Indication: Product used for unknown indication
     Dosage: 1.1 MG/KG
     Route: 065
     Dates: start: 20200623
  6. PRANLUKAST [Concomitant]
     Active Substance: PRANLUKAST
     Indication: Product used for unknown indication
     Dosage: 7 MG/KG
     Route: 065
     Dates: start: 20190225
  7. CARBOCYSTEINE [Concomitant]
     Active Substance: CARBOCYSTEINE
     Indication: Product used for unknown indication
     Dosage: 30 MG/KG
     Route: 065
     Dates: start: 20190225
  8. AMBROXOL HYDROCHLORIDE [Concomitant]
     Active Substance: AMBROXOL HYDROCHLORIDE
     Indication: Product used for unknown indication
     Dosage: 0.9 MG/KG
     Route: 065
     Dates: start: 20190225
  9. MOSAPRIDE [Concomitant]
     Active Substance: MOSAPRIDE
     Indication: Product used for unknown indication
     Dosage: 0.5 MG/KG
     Route: 065
     Dates: start: 20190729
  10. GLYCYRON [Concomitant]
     Indication: Product used for unknown indication
     Dosage: UNK
     Route: 065

REACTIONS (15)
  - Pyrexia [Recovered/Resolved]
  - Thrombocytopenia [Recovered/Resolved]
  - Gastric haemorrhage [Recovered/Resolved]
  - Urticaria [Recovered/Resolved]
  - Hepatomegaly [Recovered/Resolved]
  - Serum ferritin increased [Recovered/Resolved]
  - Hepatic function abnormal [Recovered/Resolved]
  - Nausea [Unknown]
  - Blood lactate dehydrogenase increased [Unknown]
  - Hepatic function abnormal [Recovered/Resolved]
  - Aspartate aminotransferase increased [Not Recovered/Not Resolved]
  - Alanine aminotransferase increased [Not Recovered/Not Resolved]
  - Transaminases increased [Recovered/Resolved]
  - Cytokine increased [Recovered/Resolved]
  - Gastric residual increased [Unknown]

NARRATIVE: CASE EVENT DATE: 20200624
